FAERS Safety Report 10519342 (Version 1)
Quarter: 2014Q4

REPORT INFORMATION
  Report Type: Spontaneous
  Country: US (occurrence: US)
  Receive Date: 20141015
  Receipt Date: 20141015
  Transmission Date: 20150528
  Serious: Yes (Other)
  Sender: FDA-Public Use
  Company Number: US-ASTRAZENECA-2014SE75517

PATIENT
  Age: 50 Year
  Sex: Female
  Weight: 85.3 kg

DRUGS (1)
  1. FASLODEX [Suspect]
     Active Substance: FULVESTRANT
     Indication: BREAST CANCER METASTATIC
     Route: 030
     Dates: start: 20140304

REACTIONS (1)
  - Metastases to bone [Recovered/Resolved]

NARRATIVE: CASE EVENT DATE: 20140903
